FAERS Safety Report 6698897-8 (Version None)
Quarter: 2010Q2

REPORT INFORMATION
  Report Type: 
  Country: None (occurrence: None)
  Receive Date: 20100427
  Receipt Date: 20100422
  Transmission Date: 20101027
  Serious: Yes (Hospitalization)
  Sender: FDA-Public Use
  Company Number: FR-MERCK-1004FRA00111

PATIENT
  Age: 28 Year
  Sex: Male

DRUGS (4)
  1. STROMECTOL [Suspect]
     Route: 048
     Dates: start: 20100115, end: 20100115
  2. ACYCLOVIR [Suspect]
     Indication: MENINGOENCEPHALITIS HERPETIC
     Route: 042
     Dates: start: 20100110, end: 20100118
  3. ACYCLOVIR [Suspect]
     Indication: SUSPICIOUSNESS
     Route: 042
     Dates: start: 20100110, end: 20100118
  4. MORPHINE [Suspect]
     Route: 058
     Dates: start: 20100115, end: 20100117

REACTIONS (2)
  - DELIRIUM [None]
  - HALLUCINATION [None]
